FAERS Safety Report 13628087 (Version 1)
Quarter: 2017Q2

REPORT INFORMATION
  Report Type: Spontaneous
  Country: US (occurrence: US)
  Receive Date: 20170608
  Receipt Date: 20170608
  Transmission Date: 20170830
  Serious: No
  Sender: FDA-Public Use
  Company Number: US-PERRIGO-16US022908

PATIENT
  Sex: Female

DRUGS (1)
  1. MINOXIDIL. [Suspect]
     Active Substance: MINOXIDIL
     Indication: ALOPECIA
     Dosage: 6 CAPFULS, QD
     Route: 061
     Dates: start: 20161026

REACTIONS (2)
  - Off label use [Not Recovered/Not Resolved]
  - Overdose [Not Recovered/Not Resolved]

NARRATIVE: CASE EVENT DATE: 20161026
